FAERS Safety Report 7103274-1 (Version None)
Quarter: 2010Q4

REPORT INFORMATION
  Report Type: 
  Country: None (occurrence: None)
  Receive Date: 20101115
  Receipt Date: 20091120
  Transmission Date: 20110411
  Serious: No
  Sender: FDA-Public Use
  Company Number: US-KINGPHARMUSA00001-K200901459

PATIENT
  Age: 50 Year
  Sex: Female
  Weight: 68.027 kg

DRUGS (5)
  1. CYTOMEL [Suspect]
     Indication: HYPOTHYROIDISM
     Dosage: 12.5 MCG, QD
     Route: 048
     Dates: start: 20091106, end: 20091111
  2. CYTOMEL [Suspect]
     Dosage: 5 MCG, QD
     Route: 048
     Dates: end: 20091105
  3. CYTOMEL [Suspect]
     Dosage: 5 MCG, QD
     Route: 048
     Dates: start: 20091112
  4. LEVOXYL [Suspect]
     Dosage: 137 MCG, QD
     Route: 048
     Dates: start: 20091106
  5. LEVOXYL [Suspect]
     Dosage: 125 MCG, QD
     Route: 048
     Dates: end: 20091105

REACTIONS (4)
  - BLOOD THYROID STIMULATING HORMONE INCREASED [None]
  - FEELING JITTERY [None]
  - HYPERTENSION [None]
  - HYPOTHYROIDISM [None]
